FAERS Safety Report 21084560 (Version 1)
Quarter: 2022Q3

REPORT INFORMATION
  Report Type: Spontaneous
  Country: US (occurrence: US)
  Receive Date: 20220714
  Receipt Date: 20220714
  Transmission Date: 20221027
  Serious: No
  Sender: FDA-Public Use
  Company Number: US-JAZZ-2022-US-019684

PATIENT
  Age: 28 Year
  Sex: Female

DRUGS (8)
  1. EPIDIOLEX [Suspect]
     Active Substance: CANNABIDIOL
     Indication: Epilepsy
     Dosage: 3 MILLILITER, BID
     Route: 048
     Dates: start: 202005
  2. EPIDIOLEX [Suspect]
     Active Substance: CANNABIDIOL
     Dosage: 2 MILLILITER, BID
     Route: 048
     Dates: start: 202001
  3. CLOBAZAM [Concomitant]
     Active Substance: CLOBAZAM
     Dosage: UNK
  4. ESCITALOPRAM [Concomitant]
     Active Substance: ESCITALOPRAM OXALATE
     Dosage: UNK
  5. KEPPRA [Concomitant]
     Active Substance: LEVETIRACETAM
     Dosage: UNK
  6. LACOSAMIDE [Concomitant]
     Active Substance: LACOSAMIDE
     Dosage: UNK
  7. TOPIRAMATE [Concomitant]
     Active Substance: TOPIRAMATE
     Dosage: UNK
  8. XCOPRI [Concomitant]
     Active Substance: CENOBAMATE
     Dosage: UNK

REACTIONS (2)
  - Seizure [Not Recovered/Not Resolved]
  - Decreased appetite [Not Recovered/Not Resolved]

NARRATIVE: CASE EVENT DATE: 20211201
